FAERS Safety Report 11204789 (Version 1)
Quarter: 2015Q2

REPORT INFORMATION
  Report Type: Report from Study
  Country: US (occurrence: US)
  Receive Date: 20150622
  Receipt Date: 20150622
  Transmission Date: 20150821
  Serious: Yes (Death, Other)
  Sender: FDA-Public Use
  Company Number: US-ROCHE-1593750

PATIENT
  Age: 61 Year
  Sex: Female
  Weight: 59.02 kg

DRUGS (2)
  1. ZELBORAF [Suspect]
     Active Substance: VEMURAFENIB
     Indication: LUNG NEOPLASM MALIGNANT
     Route: 048
     Dates: start: 20150114
  2. ZELBORAF [Suspect]
     Active Substance: VEMURAFENIB
     Dosage: 3 X 240 MG
     Route: 048
     Dates: end: 20150526

REACTIONS (3)
  - Lung neoplasm malignant [Fatal]
  - Pneumonitis [Recovered/Resolved]
  - Rash [Recovered/Resolved]

NARRATIVE: CASE EVENT DATE: 20150216
